FAERS Safety Report 20037913 (Version 1)
Quarter: 2021Q4

REPORT INFORMATION
  Report Type: Spontaneous
  Country: DE (occurrence: None)
  Receive Date: 20211105
  Receipt Date: 20211105
  Transmission Date: 20220303
  Serious: Yes (Other)
  Sender: FDA-Public Use
  Company Number: 2021A778862

PATIENT
  Age: 65 Year
  Sex: Male
  Weight: 95 kg

DRUGS (23)
  1. BUDESONIDE [Suspect]
     Active Substance: BUDESONIDE
     Indication: Asthma
     Dosage: IN THE MORNING AND IN THE EVENING, DAILY
     Route: 055
     Dates: start: 201802
  2. BUDESONIDE [Suspect]
     Active Substance: BUDESONIDE
     Indication: Asthma
     Dosage: EARLY AND EVENING, DAILY
     Route: 055
     Dates: start: 201802
  3. BUDESONIDE [Suspect]
     Active Substance: BUDESONIDE
     Indication: Asthma
     Dosage: UNK (1 IN THE MORNING AND 1 IN THE EVENING)
     Route: 055
  4. FORMOTEROL FUMARATE [Concomitant]
     Active Substance: FORMOTEROL FUMARATE
     Indication: Asthma
     Dosage: 1 IN THE MORNING
     Dates: start: 201802
  5. FORMOTEROL FUMARATE [Concomitant]
     Active Substance: FORMOTEROL FUMARATE
     Indication: Asthma
     Dosage: 1 IN THE MORNING
     Dates: start: 201802
  6. FORMOTEROL FUMARATE [Concomitant]
     Active Substance: FORMOTEROL FUMARATE
     Indication: Bronchitis
     Dosage: 1 IN THE MORNING
     Dates: start: 201802
  7. FORMOTEROL FUMARATE [Concomitant]
     Active Substance: FORMOTEROL FUMARATE
     Indication: Asthma
     Dosage: UNK (1 IN THE MORNING AND 1 IN THE EVENING)
  8. FORMOTEROL FUMARATE [Concomitant]
     Active Substance: FORMOTEROL FUMARATE
     Indication: Asthma
     Dosage: UNK (1 IN THE MORNING AND 1 IN THE EVENING)
  9. FORMOTEROL FUMARATE [Concomitant]
     Active Substance: FORMOTEROL FUMARATE
     Indication: Bronchitis
     Dosage: UNK (1 IN THE MORNING AND 1 IN THE EVENING)
  10. FORMOTEROL FUMARATE [Concomitant]
     Active Substance: FORMOTEROL FUMARATE
     Indication: Asthma
     Dosage: MORNING AND IN EVENING
     Dates: start: 201802
  11. FORMOTEROL FUMARATE [Concomitant]
     Active Substance: FORMOTEROL FUMARATE
     Indication: Asthma
     Dosage: MORNING AND IN EVENING
     Dates: start: 201802
  12. FORMOTEROL FUMARATE [Concomitant]
     Active Substance: FORMOTEROL FUMARATE
     Indication: Bronchitis
     Dosage: MORNING AND IN EVENING
     Dates: start: 201802
  13. TICAGRELOR [Concomitant]
     Active Substance: TICAGRELOR
     Indication: Haemodilution
     Dosage: UNK
     Dates: end: 20211008
  14. NYSTATIN [Concomitant]
     Active Substance: NYSTATIN
     Indication: Candida infection
     Dosage: UNK (2 IN THE MORNING AND 2 IN THE EVENING)
     Dates: start: 20210923, end: 20211012
  15. SPIRONOLACTONE [Concomitant]
     Active Substance: SPIRONOLACTONE
  16. ROSUVASTATIN [Concomitant]
     Active Substance: ROSUVASTATIN
  17. PANTOPRAZOL                        /01263201/ [Concomitant]
     Indication: Gastric disorder
     Dosage: UNK (1 IN THE MORNING)
  18. LOSARTAN [Concomitant]
     Active Substance: LOSARTAN
     Indication: Hypotension
     Dosage: UNK (?? IN THE MORNING AND ?? IN THE EVENING)
  19. VILDAGLIPTIN [Concomitant]
     Active Substance: VILDAGLIPTIN
     Indication: Type 2 diabetes mellitus
     Dosage: UNK (1 IN THE MORNING AND 1 IN THE EVENING)
  20. ASPIRIN [Concomitant]
     Active Substance: ASPIRIN
     Indication: Haemodilution
     Dosage: UNK (1 AT NOON)
  21. CETIRIZINE HYDROCHLORIDE [Concomitant]
     Active Substance: CETIRIZINE HYDROCHLORIDE
     Indication: Hypersensitivity
     Dosage: UNK (1 IN THE EVENING)
  22. BISOPROLOL [Concomitant]
     Active Substance: BISOPROLOL
     Indication: Hypotension
     Dosage: UNK, QD (1 IN THE MORNING)
  23. INSULIN GLARGINE [Concomitant]
     Active Substance: INSULIN GLARGINE
     Indication: Type 2 diabetes mellitus
     Dosage: UNK (15 I.U IN THE MORNING)

REACTIONS (4)
  - Gastrointestinal candidiasis [Not Recovered/Not Resolved]
  - Epigastric discomfort [Unknown]
  - Constipation [Not Recovered/Not Resolved]
  - Flatulence [Not Recovered/Not Resolved]

NARRATIVE: CASE EVENT DATE: 20180101
